FAERS Safety Report 7288713-8 (Version None)
Quarter: 2011Q1

REPORT INFORMATION
  Report Type: 
  Country: None (occurrence: None)
  Receive Date: 20110211
  Receipt Date: 20110131
  Transmission Date: 20110831
  Serious: Yes (Disabling, Other)
  Sender: FDA-Public Use
  Company Number: PHHY2011US05660

PATIENT
  Sex: Female

DRUGS (3)
  1. NORVASC [Concomitant]
  2. DIOVAN HCT [Suspect]
     Dosage: UNK
  3. DIOVAN HCT [Suspect]
     Dosage: UNK

REACTIONS (6)
  - HYPERSENSITIVITY [None]
  - FALL [None]
  - BLOOD PRESSURE DECREASED [None]
  - ACCIDENT AT WORK [None]
  - HEADACHE [None]
  - TACHYCARDIA [None]
